FAERS Safety Report 13335936 (Version 2)
Quarter: 2017Q2

REPORT INFORMATION
  Report Type: Report from Study
  Country: FR (occurrence: FR)
  Receive Date: 20170314
  Receipt Date: 20170630
  Transmission Date: 20170830
  Serious: Yes (Other)
  Sender: FDA-Public Use
  Company Number: FR-ROCHE-1905912

PATIENT
  Age: 79 Year
  Sex: Male

DRUGS (1)
  1. ATEZOLIZUMAB [Suspect]
     Active Substance: ATEZOLIZUMAB
     Indication: BLADDER CANCER
     Dosage: 2 COURSES?PATIENT RECEIVED SUBSEQUENT DOSE OF ATEZOLIZUMAB ON 13/APR/2017, 04/MAY/2017 AND 26/MAY/20
     Route: 041
     Dates: start: 20170105, end: 20170119

REACTIONS (1)
  - Renal failure [Recovering/Resolving]

NARRATIVE: CASE EVENT DATE: 20170118
